FAERS Safety Report 15566725 (Version 1)
Quarter: 2018Q4

REPORT INFORMATION
  Report Type: Spontaneous
  Country: US (occurrence: US)
  Receive Date: 20181025
  Receipt Date: 20181025
  Transmission Date: 20190205
  Serious: Yes (Hospitalization, Other)
  Sender: FDA-Public Use
  Company Number: None

PATIENT
  Age: 18 Year
  Sex: Female

DRUGS (10)
  1. ALBUTEROL. [Concomitant]
     Active Substance: ALBUTEROL
  2. VENTOLIN HFA [Concomitant]
     Active Substance: ALBUTEROL SULFATE
  3. NOVOLOG INJ FLEXPEN [Concomitant]
  4. FLUCONAZOLE. [Concomitant]
     Active Substance: FLUCONAZOLE
  5. PULMOZYME [Suspect]
     Active Substance: DORNASE ALFA
     Indication: CYSTIC FIBROSIS
     Dosage: OTHER ROUTE:NEBULIZER?
     Dates: start: 20171026
  6. TOBRAMYCIN 300 MG/5 ML NEB [Suspect]
     Active Substance: TOBRAMYCIN
     Indication: CYSTIC FIBROSIS
     Dosage: OTHER ROUTE:NEBULIZER?
     Dates: start: 20180809
  7. LANTUS SOLOSTAR [Concomitant]
     Active Substance: INSULIN GLARGINE
  8. AZITHROMYCIN ANHYDROUS. [Concomitant]
     Active Substance: AZITHROMYCIN ANHYDROUS
  9. CREON [Concomitant]
     Active Substance: PANCRELIPASE AMYLASE\PANCRELIPASE LIPASE\PANCRELIPASE PROTEASE
  10. DOXYCYCLINE MONO [Concomitant]
     Active Substance: DOXYCYCLINE

REACTIONS (1)
  - Complication associated with device [None]

NARRATIVE: CASE EVENT DATE: 20181009
